FAERS Safety Report 10029588 (Version 1)
Quarter: 2014Q1

REPORT INFORMATION
  Report Type: Spontaneous
  Country: US (occurrence: None)
  Receive Date: 20140320
  Receipt Date: 20140320
  Transmission Date: 20141002
  Serious: Yes (Life-Threatening, Hospitalization)
  Sender: FDA-Public Use
  Company Number: None

PATIENT
  Age: 48 Year
  Sex: Male
  Weight: 68 kg

DRUGS (11)
  1. AVASTIN [Suspect]
     Indication: GLIOBLASTOMA MULTIFORME
     Route: 042
     Dates: start: 20140204, end: 20140305
  2. AVASTIN [Suspect]
     Indication: REFRACTORY CANCER
     Route: 042
     Dates: start: 20140204, end: 20140305
  3. ACETAZOLAMIDE [Concomitant]
  4. AMLODIPINE [Concomitant]
  5. VIT D3 [Concomitant]
  6. DEXAMETHASONE [Concomitant]
  7. FAMOTIDINE [Concomitant]
  8. LANTUS [Concomitant]
  9. HUMALOG [Concomitant]
  10. KEPPRA [Concomitant]
  11. OXYCODONE [Concomitant]

REACTIONS (1)
  - Intracranial tumour haemorrhage [None]
